FAERS Safety Report 4288086-9 (Version None)
Quarter: 2004Q1

REPORT INFORMATION
  Report Type: 
  Country: None (occurrence: None)
  Receive Date: 20040209
  Receipt Date: 20031205
  Transmission Date: 20041129
  Serious: No
  Sender: FDA-Public Use
  Company Number: US-GLAXOSMITHKLINE-A0442154A

PATIENT
  Age: 31 Year
  Sex: Female

DRUGS (2)
  1. PAXIL [Suspect]
     Dosage: 25MG PER DAY
     Route: 048
  2. PAXIL [Suspect]
     Route: 048

REACTIONS (2)
  - DRUG WITHDRAWAL SYNDROME [None]
  - SENSORY DISTURBANCE [None]
